FAERS Safety Report 24581527 (Version 2)
Quarter: 2024Q4

REPORT INFORMATION
  Report Type: Spontaneous
  Country: US (occurrence: US)
  Receive Date: 20241105
  Receipt Date: 20241106
  Transmission Date: 20250115
  Serious: No
  Sender: CALLIDITAS THERAPEUTICS AB
  Company Number: US-Calliditas-2024CAL02430

PATIENT
  Age: 35 Year
  Sex: Female

DRUGS (1)
  1. TARPEYO [Suspect]
     Active Substance: BUDESONIDE
     Indication: IgA nephropathy
     Dosage: TAKE 4 CAPSULES BY MOUTH ONCE DAILY.
     Route: 048
     Dates: start: 20240603

REACTIONS (2)
  - Cushingoid [Not Recovered/Not Resolved]
  - Hirsutism [Not Recovered/Not Resolved]
